FAERS Safety Report 11253373 (Version 19)
Quarter: 2020Q4

REPORT INFORMATION
  Report Type: Other
  Country: CA (occurrence: CA)
  Receive Date: 20150709
  Receipt Date: 20201109
  Transmission Date: 20210113
  Serious: Yes (Hospitalization, Other)
  Sender: FDA-Public Use
  Company Number: CA-ROCHE-1559153

PATIENT
  Age: 82 Year
  Sex: Female

DRUGS (14)
  1. XOLAIR [Suspect]
     Active Substance: OMALIZUMAB
     Indication: ASTHMA
     Route: 058
     Dates: start: 20080312
  2. XOLAIR [Suspect]
     Active Substance: OMALIZUMAB
     Route: 058
     Dates: start: 20170221
  3. XOLAIR [Suspect]
     Active Substance: OMALIZUMAB
     Route: 058
     Dates: start: 20180309
  4. XOLAIR [Suspect]
     Active Substance: OMALIZUMAB
     Route: 058
     Dates: start: 20190730
  5. XOLAIR [Suspect]
     Active Substance: OMALIZUMAB
     Indication: PSORIASIS
     Route: 058
     Dates: start: 20140415
  6. XOLAIR [Suspect]
     Active Substance: OMALIZUMAB
     Route: 058
     Dates: start: 20161115
  7. XOLAIR [Suspect]
     Active Substance: OMALIZUMAB
     Route: 058
     Dates: start: 20200505
  8. ADVAIR HFA [Concomitant]
     Active Substance: FLUTICASONE PROPIONATE\SALMETEROL XINAFOATE
     Indication: PRODUCT USED FOR UNKNOWN INDICATION
     Route: 065
  9. XOLAIR [Suspect]
     Active Substance: OMALIZUMAB
     Route: 058
     Dates: start: 20171121
  10. XOLAIR [Suspect]
     Active Substance: OMALIZUMAB
     Route: 058
     Dates: start: 20181106
  11. XOLAIR [Suspect]
     Active Substance: OMALIZUMAB
     Route: 058
     Dates: start: 20150130
  12. VENTOLIN [Concomitant]
     Active Substance: ALBUTEROL SULFATE
     Indication: PRODUCT USED FOR UNKNOWN INDICATION
     Route: 065
  13. XOLAIR [Suspect]
     Active Substance: OMALIZUMAB
     Route: 058
     Dates: start: 20180717
  14. XOLAIR [Suspect]
     Active Substance: OMALIZUMAB
     Route: 058
     Dates: start: 20180410

REACTIONS (23)
  - Intestinal perforation [Recovered/Resolved]
  - Asthenia [Unknown]
  - Oropharyngeal pain [Unknown]
  - Skin ulcer [Unknown]
  - Neck pain [Unknown]
  - Vasculitis [Unknown]
  - Wrist fracture [Recovered/Resolved]
  - Eczema [Unknown]
  - Limb injury [Unknown]
  - Adrenal insufficiency [Unknown]
  - Infection [Unknown]
  - Burning sensation [Unknown]
  - Depressed mood [Unknown]
  - Product use in unapproved indication [Unknown]
  - Wound complication [Unknown]
  - Large intestine polyp [Recovered/Resolved]
  - Bronchitis [Recovering/Resolving]
  - Blood pressure decreased [Unknown]
  - Pneumonia [Unknown]
  - Gastroenteritis [Recovered/Resolved]
  - Dizziness [Unknown]
  - Nasal congestion [Unknown]
  - Off label use [Unknown]

NARRATIVE: CASE EVENT DATE: 20140714
